FAERS Safety Report 23522341 (Version 3)
Quarter: 2024Q1

REPORT INFORMATION
  Report Type: Spontaneous
  Country: US (occurrence: US)
  Receive Date: 20240214
  Receipt Date: 20240321
  Transmission Date: 20240410
  Serious: No
  Sender: FDA-Public Use
  Company Number: US-PFIZER INC-PV202400014432

PATIENT
  Age: 16 Year
  Sex: Male
  Weight: 66.68 kg

DRUGS (12)
  1. GENOTROPIN [Suspect]
     Active Substance: SOMATROPIN
     Indication: Muscle tone disorder
     Dosage: 0.8 MG, 1X/DAY
     Route: 058
     Dates: start: 202401
  2. CLONAZEPAM [Concomitant]
     Active Substance: CLONAZEPAM
     Dosage: UNK, 2X/DAY
     Route: 048
  3. LEVOCARNITINE [Concomitant]
     Active Substance: LEVOCARNITINE
     Dosage: 500 MG, 1X/DAY
     Route: 048
  4. LITHIUM [Concomitant]
     Active Substance: LITHIUM
     Dosage: 300 MG, DAILY (3 DF MORNING, 2 DF EVENING)
     Route: 048
  5. MODAFINIL [Concomitant]
     Active Substance: MODAFINIL
     Dosage: 100 MG, 1X/DAY
     Route: 048
  6. RISPERIDONE [Concomitant]
     Active Substance: RISPERIDONE
     Dosage: 0.5 DF, 2X/DAY
     Route: 048
  7. VITAMIN D NOS [Concomitant]
     Active Substance: VITAMIN D NOS
     Dosage: 5000 IU, 1X/DAY
     Route: 048
  8. CLONIDINE [Concomitant]
     Active Substance: CLONIDINE
     Dosage: 1.5 DF, DAILY (FULL TAB IN THE MORNING, HALF TAB AT NIGHT)
     Route: 048
  9. DIVALPROEX SODIUM [Concomitant]
     Active Substance: DIVALPROEX SODIUM
     Dosage: 125 MG, 2X/DAY
     Route: 048
  10. DIVALPROEX SODIUM [Concomitant]
     Active Substance: DIVALPROEX SODIUM
     Dosage: 500 MG, 2X/DAY
  11. LEVOMEFOLIC ACID [Concomitant]
     Active Substance: LEVOMEFOLIC ACID
     Dosage: 0.5 DF, 1X/DAY
  12. DOCONEXENT\ICOSAPENT [Concomitant]
     Active Substance: DOCONEXENT\ICOSAPENT
     Dosage: 1000 MG, 3X/DAY
     Route: 048

REACTIONS (2)
  - Drug dose omission by device [Unknown]
  - Device breakage [Unknown]
